FAERS Safety Report 5504435-5 (Version None)
Quarter: 2007Q4

REPORT INFORMATION
  Report Type: 
  Country: None (occurrence: None)
  Receive Date: 20071101
  Receipt Date: 20071024
  Transmission Date: 20080405
  Serious: Yes (Other)
  Sender: FDA-Public Use
  Company Number: US-PFIZER INC-2007089552

PATIENT
  Age: 18 Year
  Sex: Female

DRUGS (8)
  1. GEODON [Suspect]
     Indication: BIPOLAR DISORDER
  2. ZOLOFT [Suspect]
     Indication: DEPRESSION
  3. HYOSCYAMINE [Concomitant]
  4. PROVIGIL [Concomitant]
  5. DIPHENOXYLATE W/ATROPINE SULFATE [Concomitant]
  6. MAXALT [Concomitant]
  7. NEXIUM [Concomitant]
  8. ALLERGY MEDICATION [Concomitant]

REACTIONS (2)
  - BORDERLINE PERSONALITY DISORDER [None]
  - PAIN [None]
